FAERS Safety Report 13574446 (Version 2)
Quarter: 2017Q2

REPORT INFORMATION
  Report Type: Report from Study
  Country: IL (occurrence: IL)
  Receive Date: 20170523
  Receipt Date: 20170612
  Transmission Date: 20170830
  Serious: Yes (Other)
  Sender: FDA-Public Use
  Company Number: IL-TEVA-769324ACC

PATIENT
  Age: 57 Year
  Sex: Female

DRUGS (12)
  1. COPAXONE [Suspect]
     Active Substance: GLATIRAMER ACETATE
     Indication: MULTIPLE SCLEROSIS
     Route: 058
     Dates: start: 20150308, end: 20170307
  2. INSULIN [Concomitant]
     Active Substance: INSULIN NOS
  3. BACLOSAL [Concomitant]
     Dosage: 4 TAB A DAY
  4. ENALAPRIL [Concomitant]
     Active Substance: ENALAPRIL
     Dosage: 10 MG
  5. CYMBALTA [Concomitant]
     Active Substance: DULOXETINE HYDROCHLORIDE
  6. OMEGA 3 [Concomitant]
     Active Substance: OMEGA-3 FATTY ACIDS
  7. CLONEX (CLONAZEPAM) [Concomitant]
     Active Substance: CLONAZEPAM
     Dosage: 0.5 MG
  8. BONDORMIN [Concomitant]
     Active Substance: BROTIZOLAM
  9. SIMVASTATIN. [Concomitant]
     Active Substance: SIMVASTATIN
  10. VITAMIN D [Concomitant]
     Active Substance: CHOLECALCIFEROL
  11. CARDILOC [Concomitant]
     Active Substance: BISOPROLOL FUMARATE
     Dosage: 5 MG
  12. VITAMIN B12 [Concomitant]
     Active Substance: CYANOCOBALAMIN

REACTIONS (4)
  - Immediate post-injection reaction [Recovered/Resolved]
  - Respiratory tract congestion [Recovered/Resolved]
  - Dry mouth [Recovered/Resolved]
  - Speech disorder [Recovered/Resolved]

NARRATIVE: CASE EVENT DATE: 20170307
